FAERS Safety Report 23060667 (Version 1)
Quarter: 2023Q4

REPORT INFORMATION
  Report Type: Spontaneous
  Country: DE (occurrence: DE)
  Receive Date: 20231012
  Receipt Date: 20231012
  Transmission Date: 20240110
  Serious: Yes (Other)
  Sender: FDA-Public Use
  Company Number: DE-ROCHE-3422941

PATIENT
  Age: 49 Year
  Sex: Female

DRUGS (4)
  1. EXEMESTANE [Suspect]
     Active Substance: EXEMESTANE
     Indication: Breast cancer
     Dosage: 25 MG, 1X/DAY
     Dates: start: 20220913, end: 20221103
  2. CAPECITABINE [Suspect]
     Active Substance: CAPECITABINE
     Indication: Breast cancer
     Dosage: FREQUENCY:.5 D
     Route: 048
     Dates: end: 20221103
  3. ALIZAPRIDE HYDROCHLORIDE [Concomitant]
     Active Substance: ALIZAPRIDE HYDROCHLORIDE
     Dosage: FREQ:.3 D;
     Route: 048
     Dates: start: 20200218, end: 20200224
  4. LOPERAMIDE [Concomitant]
     Active Substance: LOPERAMIDE
     Dosage: FREQ:.3 D;
     Route: 048
     Dates: start: 20200218, end: 20200224

REACTIONS (1)
  - Thrombocytopenia [Recovered/Resolved]

NARRATIVE: CASE EVENT DATE: 20221104
